FAERS Safety Report 6316428-9 (Version None)
Quarter: 2009Q3

REPORT INFORMATION
  Report Type: 
  Country: None (occurrence: None)
  Receive Date: 20090820
  Receipt Date: 20090720
  Transmission Date: 20100115
  Serious: No
  Sender: FDA-Public Use
  Company Number: US-BAYER-200912713BCC

PATIENT
  Age: 22 Year
  Sex: Male
  Weight: 57 kg

DRUGS (2)
  1. ALEVE [Suspect]
     Indication: DRUG USE FOR UNKNOWN INDICATION
     Dosage: TOTAL DAILY DOSE: 880 MG  UNIT DOSE: 220 MG
     Route: 048
     Dates: start: 20090701, end: 20090701
  2. PERCOCET [Concomitant]
     Route: 065

REACTIONS (2)
  - GASTRIC DISORDER [None]
  - NERVOUSNESS [None]
